FAERS Safety Report 7838146-8 (Version None)
Quarter: 2011Q4

REPORT INFORMATION
  Report Type: 
  Country: None (occurrence: None)
  Receive Date: 20111024
  Receipt Date: 20101018
  Transmission Date: 20120403
  Serious: No
  Sender: FDA-Public Use
  Company Number: US-BAYER-201037639NA

PATIENT
  Age: 82 Year
  Sex: Female
  Weight: 61.678 kg

DRUGS (8)
  1. LIPITOR [Concomitant]
  2. KLONOPIN [Concomitant]
  3. METOPROLOL TARTRATE [Concomitant]
  4. XALATAN [Concomitant]
  5. ZETIA [Concomitant]
  6. ULTRAVIST 300 [Suspect]
     Indication: COMPUTERISED TOMOGRAM
  7. COUMADIN [Concomitant]
  8. ULTRAVIST 300 [Suspect]
     Indication: COMPUTERISED TOMOGRAM ABDOMEN
     Dosage: 93 ML, AT 0.8 ML/SEC
     Route: 042
     Dates: start: 20101018

REACTIONS (5)
  - EYE PRURITUS [None]
  - NASAL CONGESTION [None]
  - URTICARIA [None]
  - EAR PRURITUS [None]
  - SNEEZING [None]
